FAERS Safety Report 19066144 (Version 1)
Quarter: 2021Q1

REPORT INFORMATION
  Report Type: Spontaneous
  Country: US (occurrence: US)
  Receive Date: 20210327
  Receipt Date: 20210327
  Transmission Date: 20210420
  Serious: Yes (Other)
  Sender: FDA-Public Use
  Company Number: US-SA-2021SA103601

PATIENT
  Age: 44 Year
  Sex: Female

DRUGS (1)
  1. ZANTAC [Suspect]
     Active Substance: RANITIDINE HYDROCHLORIDE
     Dosage: DOSE: OTHER, QD
     Dates: start: 201609, end: 201910

REACTIONS (2)
  - Disease progression [Not Recovered/Not Resolved]
  - Breast cancer stage II [Not Recovered/Not Resolved]

NARRATIVE: CASE EVENT DATE: 20200217
